FAERS Safety Report 21194761 (Version 1)
Quarter: 2022Q3

REPORT INFORMATION
  Report Type: Spontaneous
  Country: CA (occurrence: None)
  Receive Date: 20220810
  Receipt Date: 20220810
  Transmission Date: 20221026
  Serious: Yes (Other)
  Sender: FDA-Public Use
  Company Number: 2022A277136

PATIENT
  Age: 59 Year
  Sex: Female

DRUGS (6)
  1. PULMICORT TURBUHALER [Suspect]
     Active Substance: BUDESONIDE
     Route: 055
  2. MOXIFLOXACIN [Suspect]
     Active Substance: MOXIFLOXACIN
     Route: 065
  3. METHOTREXATE SODIUM [Suspect]
     Active Substance: METHOTREXATE SODIUM
     Dosage: 1.0DF UNKNOWN
     Route: 065
     Dates: start: 2014
  4. METHOTREXATE SODIUM [Suspect]
     Active Substance: METHOTREXATE SODIUM
     Dosage: 15.0MG UNKNOWN
     Route: 065
  5. ABRILADA [Concomitant]
     Active Substance: ADALIMUMAB-AFZB
     Indication: Crohn^s disease
     Dates: start: 20220414, end: 2022
  6. IRON [Concomitant]
     Active Substance: IRON

REACTIONS (20)
  - Urinary tract infection bacterial [Recovered/Resolved]
  - Haematochezia [Unknown]
  - COVID-19 [Not Recovered/Not Resolved]
  - Condition aggravated [Not Recovered/Not Resolved]
  - Pain [Not Recovered/Not Resolved]
  - Vaginal infection [Not Recovered/Not Resolved]
  - Diarrhoea [Not Recovered/Not Resolved]
  - Anal incontinence [Unknown]
  - Haemorrhoids [Unknown]
  - Illness [Unknown]
  - Bronchitis [Unknown]
  - Sinusitis [Unknown]
  - Hypertension [Unknown]
  - Nasal congestion [Not Recovered/Not Resolved]
  - Stress [Unknown]
  - Defaecation urgency [Unknown]
  - Cough [Not Recovered/Not Resolved]
  - Rash [Unknown]
  - Pruritus [Unknown]
  - Drug ineffective [Unknown]

NARRATIVE: CASE EVENT DATE: 20220101
